FAERS Safety Report 8589296-2 (Version None)
Quarter: 2012Q3

REPORT INFORMATION
  Report Type: 
  Country: None (occurrence: None)
  Receive Date: 20120813
  Receipt Date: 20120807
  Transmission Date: 20120928
  Serious: Yes (Other)
  Sender: FDA-Public Use
  Company Number: FR-ROXANE LABORATORIES, INC.-2012-RO-01651RO

PATIENT
  Age: 60 Year
  Sex: Male

DRUGS (1)
  1. PREDNISONE TAB [Suspect]
     Indication: RHEUMATOID ARTHRITIS
     Dosage: 40 MG
     Route: 048

REACTIONS (3)
  - PHAEHYPHOMYCOSIS [None]
  - FUNGAL SKIN INFECTION [None]
  - SINUSITIS FUNGAL [None]
